FAERS Safety Report 14335935 (Version 1)
Quarter: 2017Q4

REPORT INFORMATION
  Report Type: Spontaneous
  Country: FR (occurrence: FR)
  Receive Date: 20171229
  Receipt Date: 20171229
  Transmission Date: 20180321
  Serious: Yes (Other)
  Sender: FDA-Public Use
  Company Number: FR-MERCK KGAA-2037997

PATIENT
  Age: 74 Year
  Sex: Female

DRUGS (6)
  1. NOVOTHYROX [Suspect]
     Active Substance: LEVOTHYROXINE SODIUM
  2. DEPAKINE [Concomitant]
     Active Substance: VALPROATE SODIUM
  3. NOVOTHYROX [Suspect]
     Active Substance: LEVOTHYROXINE SODIUM
  4. PRAXILENE [Concomitant]
     Active Substance: NAFRONYL
  5. NOVOTHYROX [Suspect]
     Active Substance: LEVOTHYROXINE SODIUM
     Indication: POST PROCEDURAL HYPOTHYROIDISM
     Dates: start: 201704, end: 201707
  6. NOVOTHYROX [Suspect]
     Active Substance: LEVOTHYROXINE SODIUM
     Dates: start: 201704, end: 201707

REACTIONS (23)
  - Nausea [None]
  - Weight decreased [None]
  - Fatigue [None]
  - Fall [None]
  - Blood thyroid stimulating hormone increased [None]
  - Heart rate increased [None]
  - Hair colour changes [None]
  - Pruritus generalised [None]
  - Body temperature decreased [None]
  - Chills [None]
  - Aggression [None]
  - Visual impairment [None]
  - Alopecia [None]
  - Tongue disorder [None]
  - Headache [None]
  - Paraesthesia [None]
  - Vertigo [None]
  - Dizziness [None]
  - Oral pain [None]
  - Flatulence [None]
  - Feeling of body temperature change [None]
  - Diarrhoea [None]
  - Gait disturbance [None]

NARRATIVE: CASE EVENT DATE: 2017
